FAERS Safety Report 4355806-4 (Version None)
Quarter: 2004Q2

REPORT INFORMATION
  Report Type: 
  Country: None (occurrence: None)
  Receive Date: 20040511
  Receipt Date: 20020418
  Transmission Date: 20050107
  Serious: Yes (Other)
  Sender: FDA-Public Use
  Company Number: US-BRISTOL-MYERS SQUIBB COMPANY-11842358

PATIENT
  Age: 24 Year
  Sex: Female

DRUGS (5)
  1. STADOL [Suspect]
     Indication: PAIN
     Route: 045
     Dates: start: 19900101
  2. STADOL [Suspect]
     Indication: MIGRAINE
     Route: 045
     Dates: start: 19900101
  3. VIOXX [Concomitant]
  4. VERAPAMIL [Concomitant]
  5. ULTRAM [Concomitant]

REACTIONS (4)
  - ABORTION SPONTANEOUS [None]
  - DEPENDENCE [None]
  - NORMAL NEWBORN [None]
  - PREGNANCY [None]
